FAERS Safety Report 7831946-X (Version None)
Quarter: 2011Q4

REPORT INFORMATION
  Report Type: 
  Country: None (occurrence: None)
  Receive Date: 20111021
  Receipt Date: 20111021
  Transmission Date: 20120403
  Serious: Yes (Life-Threatening, Hospitalization)
  Sender: FDA-Public Use
  Company Number: CA-ABBOTT-09P-028-0615702-00

PATIENT
  Sex: Female
  Weight: 68 kg

DRUGS (1)
  1. MAVIK [Suspect]
     Indication: BLOOD PRESSURE INCREASED
     Route: 048
     Dates: start: 20091001, end: 20091017

REACTIONS (1)
  - MYOCARDIAL INFARCTION [None]
